FAERS Safety Report 19444091 (Version 1)
Quarter: 2021Q2

REPORT INFORMATION
  Report Type: Spontaneous
  Country: US (occurrence: US)
  Receive Date: 20210621
  Receipt Date: 20210621
  Transmission Date: 20210717
  Serious: Yes (Other)
  Sender: FDA-Public Use
  Company Number: US-PFIZER INC-2021702585

PATIENT
  Age: 75 Year
  Sex: Male

DRUGS (4)
  1. OFEV [Suspect]
     Active Substance: NINTEDANIB
     Indication: IDIOPATHIC PULMONARY FIBROSIS
     Dosage: 300 MG, DAILY
     Route: 048
  2. OFEV [Suspect]
     Active Substance: NINTEDANIB
     Dosage: 200 MG, DAILY
     Route: 048
  3. OFEV [Suspect]
     Active Substance: NINTEDANIB
     Dosage: 150 MG, DAILY
     Route: 048
  4. CELEBREX [Suspect]
     Active Substance: CELECOXIB
     Dosage: UNK

REACTIONS (8)
  - Weight decreased [Unknown]
  - Dizziness [Unknown]
  - Diarrhoea [Unknown]
  - Therapeutic response unexpected [Unknown]
  - Taste disorder [Unknown]
  - Renal impairment [Unknown]
  - Chronic obstructive pulmonary disease [Unknown]
  - Abdominal pain upper [Unknown]

NARRATIVE: CASE EVENT DATE: 202008
